FAERS Safety Report 10372644 (Version 1)
Quarter: 2014Q3

REPORT INFORMATION
  Report Type: Spontaneous
  Country: US (occurrence: US)
  Receive Date: 20140808
  Receipt Date: 20140808
  Transmission Date: 20150326
  Serious: No
  Sender: FDA-Public Use
  Company Number: US-BRISTOL-MYERS SQUIBB COMPANY-21124573

PATIENT
  Age: 66 Year
  Sex: Female

DRUGS (2)
  1. PRIMIDONE. [Interacting]
     Active Substance: PRIMIDONE
     Indication: TREMOR
  2. SPRYCEL [Suspect]
     Active Substance: DASATINIB

REACTIONS (2)
  - Tremor [Not Recovered/Not Resolved]
  - Drug interaction [Not Recovered/Not Resolved]
